FAERS Safety Report 9542361 (Version 2)
Quarter: 2013Q3

REPORT INFORMATION
  Report Type: Spontaneous
  Country: US (occurrence: US)
  Receive Date: 20130923
  Receipt Date: 20130923
  Transmission Date: 20140515
  Serious: Yes (Hospitalization, Other)
  Sender: FDA-Public Use
  Company Number: US-DENDREON CORPORATION-2013PROUSA02983

PATIENT
  Age: 86 Year
  Sex: Male
  Weight: 83.92 kg

DRUGS (1)
  1. PROVENGE [Suspect]
     Indication: PROSTATE CANCER METASTATIC
     Dosage: 250 ML, SINGLE
     Route: 042
     Dates: start: 20130610, end: 20130610

REACTIONS (14)
  - Acute respiratory failure [Recovering/Resolving]
  - Systemic inflammatory response syndrome [Recovering/Resolving]
  - Renal tubular necrosis [Recovering/Resolving]
  - Sepsis [Recovering/Resolving]
  - Device related sepsis [Recovering/Resolving]
  - Hyperglycaemia [Recovering/Resolving]
  - Proteinuria [Recovering/Resolving]
  - Hypokalaemia [Recovering/Resolving]
  - Depression [Recovering/Resolving]
  - Lactic acidosis [Recovering/Resolving]
  - Blood albumin decreased [Unknown]
  - Platelet count decreased [Recovering/Resolving]
  - Vomiting [Recovering/Resolving]
  - Anaemia [Recovering/Resolving]
